FAERS Safety Report 15222268 (Version 2)
Quarter: 2018Q3

REPORT INFORMATION
  Report Type: Spontaneous
  Country: CA (occurrence: CA)
  Receive Date: 20180731
  Receipt Date: 20180926
  Transmission Date: 20181010
  Serious: Yes (Other)
  Sender: FDA-Public Use
  Company Number: CA-CELLTRION INC.-2018CA017822

PATIENT

DRUGS (8)
  1. INFLECTRA [Suspect]
     Active Substance: INFLIXIMAB-DYYB
     Indication: ANKYLOSING SPONDYLITIS
     Dosage: 380 MG, CYCLIC (THEN EVERY 8 WEEKS)
     Route: 042
     Dates: start: 20170824
  2. INFLECTRA [Suspect]
     Active Substance: INFLIXIMAB-DYYB
     Dosage: 380 MG, CYCLIC (EVERY 8 WEEKS)
     Route: 042
     Dates: start: 20180524
  3. INFLECTRA [Suspect]
     Active Substance: INFLIXIMAB-DYYB
     Dosage: 380 MG, CYCLIC (EVERY 8 WEEKS)
     Route: 042
     Dates: start: 20180913
  4. INFLECTRA [Suspect]
     Active Substance: INFLIXIMAB-DYYB
     Dosage: 380 MG, CYCLIC (EVERY 8 WEEKS)
     Route: 042
     Dates: start: 20180327
  5. INFLECTRA [Suspect]
     Active Substance: INFLIXIMAB-DYYB
     Dosage: 380 MG, CYCLIC (THEN EVERY 8 WEEKS)
     Route: 042
     Dates: start: 20171205
  6. INFLECTRA [Suspect]
     Active Substance: INFLIXIMAB-DYYB
     Dosage: 380 MG, CYCLIC (EVERY 8 WEEKS)
     Route: 042
     Dates: start: 20180717
  7. SULFASALAZINE. [Concomitant]
     Active Substance: SULFASALAZINE
     Dosage: UNK
     Route: 065
  8. INFLECTRA [Suspect]
     Active Substance: INFLIXIMAB-DYYB
     Dosage: 380 MG, CYCLIC (EVERY 8 WEEKS)
     Route: 042
     Dates: start: 20180130

REACTIONS (11)
  - Psoriasis [Not Recovered/Not Resolved]
  - Expired product administered [Unknown]
  - Pain in extremity [Unknown]
  - Impatience [Unknown]
  - Off label use [Unknown]
  - Abdominal pain [Unknown]
  - Arthralgia [Unknown]
  - Drug ineffective [Unknown]
  - Blood pressure fluctuation [Unknown]
  - Alopecia [Unknown]
  - Product use issue [Unknown]

NARRATIVE: CASE EVENT DATE: 201712
